FAERS Safety Report 4700636-4 (Version None)
Quarter: 2005Q2

REPORT INFORMATION
  Report Type: 
  Country: None (occurrence: None)
  Receive Date: 20050627
  Receipt Date: 20050622
  Transmission Date: 20051028
  Serious: Yes (Other)
  Sender: FDA-Public Use
  Company Number: JP-MERCK-0506USA03412

PATIENT
  Age: 94 Year
  Sex: Female

DRUGS (7)
  1. FOSAMAX [Suspect]
     Indication: OSTEOPOROSIS
     Route: 048
     Dates: start: 20050408, end: 20050411
  2. NORVASC [Concomitant]
     Indication: HYPERTENSION
     Route: 065
  3. MEVALOTIN [Concomitant]
     Indication: HYPERLIPIDAEMIA
     Route: 065
  4. ETIZOLAM [Concomitant]
     Indication: PAIN
     Route: 065
  5. FLUVOXAMINE MALEATE [Concomitant]
     Indication: PAIN
     Route: 065
  6. TICLOPIDINE HYDROCHLORIDE [Concomitant]
     Indication: HYPERTENSION
     Route: 065
  7. D-ALPHA [Concomitant]
     Indication: OSTEOPOROSIS
     Route: 065

REACTIONS (1)
  - DYSPNOEA [None]
